FAERS Safety Report 18556627 (Version 1)
Quarter: 2020Q4

REPORT INFORMATION
  Report Type: Spontaneous
  Country: US (occurrence: US)
  Receive Date: 20201128
  Receipt Date: 20201128
  Transmission Date: 20210114
  Serious: Yes (Other)
  Sender: FDA-Public Use
  Company Number: US-009507513-2011USA015106

PATIENT
  Age: 90 Year
  Sex: Male
  Weight: 88.5 kg

DRUGS (11)
  1. ZESTORETIC [Suspect]
     Active Substance: HYDROCHLOROTHIAZIDE\LISINOPRIL
     Indication: HYPERTENSION
     Dosage: 20 MG DAILY
     Route: 048
     Dates: start: 1994
  2. BICALUTAMIDE. [Suspect]
     Active Substance: BICALUTAMIDE
     Indication: PROSTATIC SPECIFIC ANTIGEN INCREASED
     Dosage: 50 MILLIGRAM, QD
     Route: 048
     Dates: start: 20120905
  3. OCUVITE [Concomitant]
     Active Substance: VITAMINS
     Indication: EYE DISORDER
  4. LIPITOR [Concomitant]
     Active Substance: ATORVASTATIN CALCIUM
     Route: 048
     Dates: start: 1998
  5. AMLODIPINE [Concomitant]
     Active Substance: AMLODIPINE BESYLATE
     Indication: BLOOD PRESSURE ABNORMAL
     Route: 048
  6. METOPROLOL TARTRATE. [Concomitant]
     Active Substance: METOPROLOL TARTRATE
     Indication: BLOOD PRESSURE ABNORMAL
     Route: 048
  7. FISH OIL [Concomitant]
     Active Substance: FISH OIL
     Indication: VITAMIN SUPPLEMENTATION
     Dosage: 1000 MILLIGRAM, QD
     Route: 048
  8. PRINIVIL [Suspect]
     Active Substance: LISINOPRIL
     Indication: BLOOD PRESSURE ABNORMAL
     Dosage: 40 MILLIGRAM, QD
     Route: 048
  9. UBIDECARENONE. [Concomitant]
     Active Substance: UBIDECARENONE
     Dosage: BID
     Route: 048
  10. AVODART [Concomitant]
     Active Substance: DUTASTERIDE
     Indication: PROSTATIC SPECIFIC ANTIGEN INCREASED
  11. CENTRUM (MINERALS (UNSPECIFIED) (+) VITAMINS (UNSPECIFIED)) [Concomitant]
     Active Substance: MINERALS\VITAMINS
     Dosage: DAILY
     Route: 048

REACTIONS (14)
  - Cataract [Unknown]
  - Pain in extremity [Unknown]
  - Walking aid user [Unknown]
  - Prostatic specific antigen increased [Unknown]
  - Metastases to lymph nodes [Unknown]
  - Rash [Unknown]
  - Drug hypersensitivity [Unknown]
  - Lip swelling [Unknown]
  - Furuncle [Unknown]
  - Pain in extremity [Unknown]
  - Rash vesicular [Not Recovered/Not Resolved]
  - Product use in unapproved indication [Unknown]
  - Limb discomfort [Unknown]
  - Macular degeneration [Unknown]

NARRATIVE: CASE EVENT DATE: 1994
